FAERS Safety Report 4957289-X (Version None)
Quarter: 2006Q1

REPORT INFORMATION
  Report Type: 
  Country: None (occurrence: None)
  Receive Date: 20060323
  Receipt Date: 20060316
  Transmission Date: 20060701
  Serious: Yes (Disabling)
  Sender: FDA-Public Use
  Company Number: OMPQ-PR-0603S-0184

PATIENT
  Sex: Male

DRUGS (1)
  1. OMNIPAQUE 140 [Suspect]
     Dosage: 50 ML SINGLE DOSE, EXTRAVASATION
     Dates: start: 20060201, end: 20060201

REACTIONS (2)
  - COMPLEX REGIONAL PAIN SYNDROME [None]
  - INJECTION SITE EXTRAVASATION [None]
